FAERS Safety Report 5595786-7 (Version None)
Quarter: 2008Q1

REPORT INFORMATION
  Report Type: 
  Country: None (occurrence: None)
  Receive Date: 20080118
  Receipt Date: 20080110
  Transmission Date: 20080703
  Serious: Yes (Hospitalization)
  Sender: FDA-Public Use
  Company Number: B0503552A

PATIENT
  Age: 82 Year
  Sex: Female

DRUGS (18)
  1. AUGMENTIN '125' [Suspect]
     Dosage: 1G THREE TIMES PER DAY
     Route: 048
     Dates: start: 20070703, end: 20070713
  2. COUMADIN [Concomitant]
     Dosage: 4MG PER DAY
     Route: 048
     Dates: start: 20070707, end: 20070710
  3. CORDARONE [Concomitant]
     Route: 048
     Dates: start: 20070706
  4. DIGITALINE NATIVELLE [Concomitant]
     Dosage: .25MG PER DAY
     Route: 042
     Dates: start: 20070705, end: 20070706
  5. LOVENOX [Concomitant]
     Dosage: 1INJ SEE DOSAGE TEXT
     Route: 058
     Dates: start: 20070704, end: 20070710
  6. LANSOPRAZOL [Concomitant]
     Dosage: 30MG PER DAY
     Route: 048
     Dates: start: 20070703
  7. FORLAX [Concomitant]
     Dosage: 10G PER DAY
     Route: 048
     Dates: start: 20070706
  8. CACIT VITAMINE D3 [Concomitant]
     Indication: OSTEOPOROSIS
     Dosage: 1UNIT PER DAY
     Route: 048
     Dates: start: 20070710
  9. PROTELOS [Concomitant]
     Indication: OSTEOPOROSIS
     Dosage: 2G PER DAY
     Route: 048
     Dates: start: 20070711
  10. ACTONEL [Concomitant]
     Dates: end: 20070703
  11. DOLIPRANE [Concomitant]
     Dates: end: 20070703
  12. FORADIL [Concomitant]
     Dates: end: 20070703
  13. INIPOMP [Concomitant]
     Dates: end: 20070703
  14. TARDYFERON [Concomitant]
     Dates: end: 20070703
  15. HEXAQUINE [Concomitant]
     Dates: end: 20070703
  16. TANAKAN [Concomitant]
     Dates: end: 20070703
  17. CARBOCYSTEINE [Concomitant]
     Dates: end: 20070703
  18. NIFLUGEL [Concomitant]
     Dates: end: 20070703

REACTIONS (3)
  - CLOSTRIDIUM DIFFICILE COLITIS [None]
  - PYREXIA [None]
  - RECTAL HAEMORRHAGE [None]
